FAERS Safety Report 10387410 (Version 3)
Quarter: 2015Q4

REPORT INFORMATION
  Report Type: Spontaneous
  Country: FR (occurrence: FR)
  Receive Date: 20140815
  Receipt Date: 20151020
  Transmission Date: 20160304
  Serious: Yes (Death, Life-Threatening, Hospitalization)
  Sender: FDA-Public Use
  Company Number: FR-ELI_LILLY_AND_COMPANY-FR201408003016

PATIENT
  Age: 73 Year
  Sex: Female

DRUGS (19)
  1. CYMBALTA [Suspect]
     Active Substance: DULOXETINE HYDROCHLORIDE
     Indication: DEPRESSION
     Dosage: UNK, UNKNOWN
     Route: 048
  2. TRINITRINE [Concomitant]
     Active Substance: NITROGLYCERIN
     Dosage: 10 MG, QD
     Route: 065
  3. EUPANTOL [Concomitant]
     Active Substance: PANTOPRAZOLE SODIUM
     Dosage: 20 MG, QD
     Route: 065
  4. SPECIAFOLDINE [Concomitant]
     Active Substance: FOLIC ACID
     Dosage: 5 MG, QD
     Route: 065
  5. VITAMIN B12 [Concomitant]
     Active Substance: CYANOCOBALAMIN
     Dosage: UNK, MONTHLY (1/M)
     Route: 065
  6. THERALENE [Concomitant]
     Active Substance: TRIMEPRAZINE
     Dosage: 10 GTT, QD
  7. NEURONTIN [Concomitant]
     Active Substance: GABAPENTIN
     Dosage: 600 MG, TID
     Route: 065
  8. BI TILDIEM [Concomitant]
     Active Substance: DILTIAZEM HYDROCHLORIDE
     Dosage: 90 MG, BID
     Route: 065
  9. TAHOR [Concomitant]
     Active Substance: ATORVASTATIN CALCIUM
     Dosage: 10 MG, QD
     Route: 065
  10. AROMASINE [Concomitant]
     Active Substance: EXEMESTANE
     Indication: BREAST CANCER
     Dosage: 25 MG, QD
     Route: 048
  11. SERESTA [Concomitant]
     Active Substance: OXAZEPAM
     Dosage: 2 DF, QD
     Route: 065
  12. DAFALGAN [Concomitant]
     Active Substance: ACETAMINOPHEN
     Dosage: UNK, UNKNOWN
     Route: 065
  13. GLUCOPHAGE [Concomitant]
     Active Substance: METFORMIN HYDROCHLORIDE
     Dosage: 1000 MG, TID
  14. MYSOLINE [Suspect]
     Active Substance: PRIMIDONE
     Indication: ESSENTIAL TREMOR
     Dosage: 250 MG, QD
     Route: 048
     Dates: start: 20140313
  15. KARDEGIC [Concomitant]
     Active Substance: ASPIRIN LYSINE
     Dosage: 75 MG, QD
     Route: 065
  16. MIANSERINE [Concomitant]
     Active Substance: MIANSERIN HYDROCHLORIDE
     Dosage: UNK UNK, UNKNOWN
     Route: 065
     Dates: start: 201309
  17. MYSOLINE [Suspect]
     Active Substance: PRIMIDONE
     Dosage: 250 MG, QD
     Route: 048
     Dates: start: 20140626
  18. IMOVANE [Suspect]
     Active Substance: ZOPICLONE
     Indication: DEPRESSION
     Dosage: 7.5 MG, UNKNOWN
     Route: 048
     Dates: start: 201406, end: 201406
  19. NOVONORM [Concomitant]
     Active Substance: REPAGLINIDE
     Dosage: 2 MG, TID
     Route: 065

REACTIONS (3)
  - Suicide attempt [Recovered/Resolved]
  - Toxicity to various agents [Unknown]
  - Completed suicide [Fatal]

NARRATIVE: CASE EVENT DATE: 20140618
